FAERS Safety Report 25526959 (Version 1)
Quarter: 2025Q3

REPORT INFORMATION
  Report Type: Spontaneous
  Country: EU (occurrence: EU)
  Receive Date: 20250707
  Receipt Date: 20250707
  Transmission Date: 20251020
  Serious: Yes (Other)
  Sender: ABBVIE
  Company Number: None

PATIENT
  Age: 29 Year
  Sex: Male
  Weight: 63 kg

DRUGS (2)
  1. ESCITALOPRAM [Suspect]
     Active Substance: ESCITALOPRAM OXALATE
     Indication: Anxiety
     Dosage: 1 TABLET EVERY MORNING
     Route: 065
  2. ESCITALOPRAM [Suspect]
     Active Substance: ESCITALOPRAM OXALATE
     Indication: Anxiety
     Dosage: 1 TABLET EVERY MORNING
     Route: 065

REACTIONS (7)
  - Impaired quality of life [Recovered/Resolved with Sequelae]
  - Cognitive disorder [Recovered/Resolved with Sequelae]
  - Vision blurred [Recovered/Resolved]
  - Memory impairment [Recovered/Resolved with Sequelae]
  - Malaise [Recovered/Resolved]
  - Fatigue [Recovered/Resolved]
  - Strabismus [Recovered/Resolved]
